FAERS Safety Report 8147638-6 (Version None)
Quarter: 2012Q1

REPORT INFORMATION
  Report Type: 
  Country: None (occurrence: None)
  Receive Date: 20120218
  Receipt Date: 20110301
  Transmission Date: 20120608
  Serious: No
  Sender: FDA-Public Use
  Company Number: US-ALLERGAN-1102911US

PATIENT

DRUGS (2)
  1. BOTULINUM TOXIN TYPE A [Suspect]
     Indication: HEADACHE
     Dosage: 32 UNITS, SINGLE
     Route: 030
     Dates: start: 20110222, end: 20110222
  2. BOTULINUM TOXIN TYPE A [Suspect]
     Indication: ARTHRALGIA

REACTIONS (5)
  - URTICARIA [None]
  - WHEEZING [None]
  - APHONIA [None]
  - JOINT RANGE OF MOTION DECREASED [None]
  - ARTHRALGIA [None]
